FAERS Safety Report 10144545 (Version 1)
Quarter: 2014Q2

REPORT INFORMATION
  Report Type: Spontaneous
  Country: US (occurrence: US)
  Receive Date: 20140430
  Receipt Date: 20140430
  Transmission Date: 20141212
  Serious: No
  Sender: FDA-Public Use
  Company Number: US-SANOFI-AVENTIS-2013SA041562

PATIENT
  Age: 63 Year
  Sex: Female

DRUGS (8)
  1. LOVENOX [Suspect]
     Indication: THROMBOSIS
     Route: 065
     Dates: start: 20130410
  2. LOVENOX [Suspect]
     Indication: HAEMOCHROMATOSIS
     Route: 065
     Dates: start: 20130410
  3. LOVENOX [Suspect]
     Indication: THROMBOSIS
     Route: 065
     Dates: start: 20130619
  4. LOVENOX [Suspect]
     Indication: HAEMOCHROMATOSIS
     Route: 065
     Dates: start: 20130619
  5. WARFARIN [Concomitant]
  6. WARFARIN [Concomitant]
  7. MORPHINE [Suspect]
  8. LASIX [Suspect]

REACTIONS (6)
  - Fluid retention [Not Recovered/Not Resolved]
  - Pain [Not Recovered/Not Resolved]
  - Injection site haemorrhage [Unknown]
  - Injection site pain [Unknown]
  - Drug administration error [Unknown]
  - Injection site discolouration [Unknown]
